FAERS Safety Report 15490498 (Version 17)
Quarter: 2022Q1

REPORT INFORMATION
  Report Type: Spontaneous
  Country: GB (occurrence: GB)
  Receive Date: 20181011
  Receipt Date: 20220302
  Transmission Date: 20220423
  Serious: Yes (Death, Life-Threatening, Hospitalization, Disabling, Other)
  Sender: FDA-Public Use
  Company Number: PHHY2018GB120635

PATIENT
  Age: 76 Year
  Sex: Male
  Weight: 69 kg

DRUGS (113)
  1. CLARITHROMYCIN [Interacting]
     Active Substance: CLARITHROMYCIN
     Indication: Pneumonia
     Dosage: 500 MILLIGRAM, BID
     Route: 042
     Dates: start: 20180127, end: 20180131
  2. CLARITHROMYCIN [Interacting]
     Active Substance: CLARITHROMYCIN
     Indication: Mediastinitis
     Dosage: 1000 MILLIGRAM, QD
     Route: 042
     Dates: start: 20180127, end: 20180131
  3. CLARITHROMYCIN [Interacting]
     Active Substance: CLARITHROMYCIN
     Indication: Lower respiratory tract infection
     Dosage: UNK
     Route: 065
  4. CLARITHROMYCIN [Interacting]
     Active Substance: CLARITHROMYCIN
     Dosage: UNK
     Route: 065
  5. CLARITHROMYCIN [Interacting]
     Active Substance: CLARITHROMYCIN
     Dosage: UNK
     Route: 065
  6. CLARITHROMYCIN [Interacting]
     Active Substance: CLARITHROMYCIN
     Dosage: UNK
     Route: 065
  7. CLARITHROMYCIN [Interacting]
     Active Substance: CLARITHROMYCIN
     Dosage: UNK
     Route: 065
  8. CLARITHROMYCIN [Interacting]
     Active Substance: CLARITHROMYCIN
     Dosage: UNK
     Route: 065
  9. CLARITHROMYCIN [Interacting]
     Active Substance: CLARITHROMYCIN
     Dosage: UNK
     Route: 065
  10. CLARITHROMYCIN [Interacting]
     Active Substance: CLARITHROMYCIN
     Dosage: 500 MILLIGRAM, BID
     Route: 042
  11. CLARITHROMYCIN [Interacting]
     Active Substance: CLARITHROMYCIN
     Dosage: UNK
     Route: 065
  12. CLARITHROMYCIN [Interacting]
     Active Substance: CLARITHROMYCIN
     Dosage: 9000 MILLIGRAM
     Route: 065
  13. BISOPROLOL [Suspect]
     Active Substance: BISOPROLOL
     Indication: Product used for unknown indication
     Dosage: UNK
     Route: 065
  14. BISOPROLOL [Suspect]
     Active Substance: BISOPROLOL
     Dosage: UNK
     Route: 065
  15. BISOPROLOL [Suspect]
     Active Substance: BISOPROLOL
     Dosage: UNK
     Route: 065
  16. BISOPROLOL [Suspect]
     Active Substance: BISOPROLOL
     Dosage: UNK
     Route: 065
  17. BISOPROLOL [Suspect]
     Active Substance: BISOPROLOL
     Dosage: UNK
     Route: 065
  18. CEFUROXIME [Suspect]
     Active Substance: CEFUROXIME
     Indication: Product used for unknown indication
     Dosage: UNK
     Route: 042
  19. CEFUROXIME [Suspect]
     Active Substance: CEFUROXIME
     Indication: Product used for unknown indication
     Dosage: UNK
     Route: 065
  20. CEFUROXIME [Suspect]
     Active Substance: CEFUROXIME
     Dosage: UNK
     Route: 065
  21. CEFUROXIME [Suspect]
     Active Substance: CEFUROXIME
     Dosage: UNK
     Route: 065
     Dates: start: 20180131
  22. CEFUROXIME [Suspect]
     Active Substance: CEFUROXIME
     Dosage: UNK
     Route: 065
  23. CEFUROXIME [Suspect]
     Active Substance: CEFUROXIME
     Dosage: UNK
     Route: 065
  24. CEFUROXIME [Suspect]
     Active Substance: CEFUROXIME
     Dosage: UNK
     Route: 065
  25. TACROLIMUS [Interacting]
     Active Substance: TACROLIMUS
     Indication: Prophylaxis against transplant rejection
     Dosage: 3 MG, QD (1.5 MG, BID)
     Route: 048
     Dates: start: 20180127, end: 20180131
  26. TACROLIMUS [Interacting]
     Active Substance: TACROLIMUS
     Indication: Renal transplant
     Dosage: 30 MILLIGRAM, QD (15 MG, BID)
     Route: 048
  27. TACROLIMUS [Suspect]
     Active Substance: TACROLIMUS
     Indication: Renal transplant
     Dosage: 1.5 MILLIGRAM, BID
     Route: 048
     Dates: start: 20100127, end: 20180130
  28. TACROLIMUS [Suspect]
     Active Substance: TACROLIMUS
     Indication: Prophylaxis against transplant rejection
     Dosage: 1.5 MG, BID
     Route: 048
     Dates: start: 20180127
  29. TACROLIMUS [Suspect]
     Active Substance: TACROLIMUS
     Indication: Renal transplant
     Dosage: 2 MG, BID
     Route: 048
     Dates: start: 20180127
  30. TACROLIMUS [Suspect]
     Active Substance: TACROLIMUS
     Dosage: 2 MILLIGRAM, BID
     Route: 065
     Dates: start: 20180128
  31. TACROLIMUS [Suspect]
     Active Substance: TACROLIMUS
     Dosage: 15 MG, BID
     Route: 065
  32. TACROLIMUS [Suspect]
     Active Substance: TACROLIMUS
     Dosage: 30 MG, QD
     Route: 048
  33. TACROLIMUS [Suspect]
     Active Substance: TACROLIMUS
     Dosage: 1.5 MILLIGRAM, BID
     Route: 048
     Dates: start: 20100127, end: 20180130
  34. TACROLIMUS [Suspect]
     Active Substance: TACROLIMUS
     Dosage: 1.5 MILLIGRAM, BID
     Route: 048
     Dates: start: 20100127, end: 20180130
  35. TACROLIMUS [Suspect]
     Active Substance: TACROLIMUS
     Dosage: 4 MG, QD
     Route: 065
  36. TACROLIMUS [Suspect]
     Active Substance: TACROLIMUS
     Dosage: 30 MG, QD
     Route: 048
  37. TACROLIMUS [Suspect]
     Active Substance: TACROLIMUS
     Dosage: 15 MILLIGRAM, BID
     Route: 048
     Dates: start: 20180127
  38. TACROLIMUS [Suspect]
     Active Substance: TACROLIMUS
     Dosage: 2 MILLIGRAM, BID
     Route: 065
     Dates: start: 20180128
  39. TACROLIMUS [Suspect]
     Active Substance: TACROLIMUS
     Dosage: 4 MILLIGRAM, QD
     Route: 065
  40. TACROLIMUS [Suspect]
     Active Substance: TACROLIMUS
     Dosage: 2 MILLIGRAM, QD(TACROLIMUS 2 MG TWICE DAILY )
     Route: 065
  41. TACROLIMUS [Suspect]
     Active Substance: TACROLIMUS
     Dosage: 4 MILLIGRAM, QD
     Route: 065
  42. TACROLIMUS [Suspect]
     Active Substance: TACROLIMUS
     Dosage: 4 MILLIGRAM, QD
     Route: 065
     Dates: start: 20180128
  43. TACROLIMUS [Suspect]
     Active Substance: TACROLIMUS
     Dosage: 15 MILLIGRAM, BID
     Route: 048
  44. PENICILLIN [Suspect]
     Active Substance: PENICILLIN
     Indication: Product used for unknown indication
     Dosage: UNK
     Route: 065
  45. ENVARSUS XR [Interacting]
     Active Substance: TACROLIMUS
     Indication: Prophylaxis against transplant rejection
     Dosage: UNK
     Route: 065
  46. ENVARSUS XR [Interacting]
     Active Substance: TACROLIMUS
     Indication: Renal transplant
     Dosage: 3 MG, QD (1.5 MG, BID)
     Route: 048
     Dates: start: 20180127, end: 20180131
  47. ENVARSUS XR [Interacting]
     Active Substance: TACROLIMUS
     Dosage: UNK
     Route: 065
  48. ENVARSUS XR [Interacting]
     Active Substance: TACROLIMUS
     Dosage: UNK
     Route: 065
  49. ENVARSUS XR [Interacting]
     Active Substance: TACROLIMUS
     Dosage: UNK
     Route: 065
  50. ENVARSUS XR [Interacting]
     Active Substance: TACROLIMUS
     Dosage: UNK
     Route: 065
  51. ENVARSUS XR [Interacting]
     Active Substance: TACROLIMUS
     Dosage: UNK
     Route: 065
  52. ENVARSUS XR [Interacting]
     Active Substance: TACROLIMUS
     Dosage: 27 MILLIGRAM
     Route: 065
  53. ENVARSUS XR [Interacting]
     Active Substance: TACROLIMUS
     Dosage: 12 MILLIGRAM
     Route: 065
  54. OMEPRAZOLE [Suspect]
     Active Substance: OMEPRAZOLE
     Indication: Duodenal ulcer
     Dosage: 20 MG, QD (CHEMO IBERICA)
     Route: 048
  55. OMEPRAZOLE [Suspect]
     Active Substance: OMEPRAZOLE
     Dosage: 20 MG, QD (MORNING)
     Route: 048
  56. OMEPRAZOLE [Suspect]
     Active Substance: OMEPRAZOLE
     Dosage: 20 MG, QMO
     Route: 048
  57. OMEPRAZOLE [Suspect]
     Active Substance: OMEPRAZOLE
     Dosage: 20 MG, QD
     Route: 048
  58. NITROGLYCERIN [Suspect]
     Active Substance: NITROGLYCERIN
     Indication: Product used for unknown indication
     Dosage: UNK
     Route: 065
  59. UNSPECIFIED INGREDIENT [Suspect]
     Active Substance: UNSPECIFIED INGREDIENT
     Indication: Product used for unknown indication
     Dosage: UNK
     Route: 065
  60. HYDROCORTISONE [Suspect]
     Active Substance: HYDROCORTISONE
     Indication: Product used for unknown indication
     Dosage: 50 MG, TID
     Route: 042
  61. HYDROCORTISONE [Suspect]
     Active Substance: HYDROCORTISONE
     Dosage: 150 MILLIGRAM, TID
     Route: 042
     Dates: start: 20180201
  62. HYDROCORTISONE [Suspect]
     Active Substance: HYDROCORTISONE
     Dosage: 50 MILLIGRAM, TID
     Route: 042
     Dates: start: 20180201
  63. HYDROCORTISONE [Suspect]
     Active Substance: HYDROCORTISONE
     Dosage: 150 MILLIGRAM, QD
     Route: 042
     Dates: start: 20180201
  64. NITROGLYCERIN [Suspect]
     Active Substance: NITROGLYCERIN
     Indication: Product used for unknown indication
     Dosage: UNK
     Route: 065
  65. NITROGLYCERIN [Suspect]
     Active Substance: NITROGLYCERIN
     Indication: Product used for unknown indication
  66. DEXTROSE [Suspect]
     Active Substance: DEXTROSE
     Indication: Product used for unknown indication
     Dosage: UNK
     Route: 065
  67. ALFACALCIDOL [Concomitant]
     Active Substance: ALFACALCIDOL
     Indication: Product used for unknown indication
     Dosage: 500 NANOGRAM, QD
     Route: 048
  68. DOXYCYCLINE [Suspect]
     Active Substance: DOXYCYCLINE
     Indication: Product used for unknown indication
     Dosage: 1 DOSAGE FORM
     Route: 065
  69. ALLOPURINOL SODIUM [Concomitant]
     Active Substance: ALLOPURINOL SODIUM
     Indication: Product used for unknown indication
     Dosage: 100 MILLIGRAM, QD
     Route: 048
  70. BETAHISTINE [Concomitant]
     Active Substance: BETAHISTINE
     Indication: Product used for unknown indication
     Dosage: 8 MG, MONTHLY
     Route: 048
  71. BETAHISTINE [Concomitant]
     Active Substance: BETAHISTINE
     Dosage: 8 MILLIGRAM, QD, MORNING
     Route: 048
  72. CHOLECALCIFEROL [Concomitant]
     Active Substance: CHOLECALCIFEROL
     Indication: Product used for unknown indication
     Dosage: 20 NG, QD
     Route: 048
  73. CHOLECALCIFEROL [Concomitant]
     Active Substance: CHOLECALCIFEROL
     Dosage: 20 NG, QMO
     Route: 048
  74. EPLERENONE [Concomitant]
     Active Substance: EPLERENONE
     Indication: Product used for unknown indication
     Dosage: 25 MILLIGRAM, QD, MORNING
     Route: 048
  75. EPLERENONE [Concomitant]
     Active Substance: EPLERENONE
     Dosage: 25 MG, MONTHLY
     Route: 048
     Dates: end: 20180130
  76. EPLERENONE [Concomitant]
     Active Substance: EPLERENONE
     Dosage: 25 MILLIGRAM, QD,
     Route: 065
     Dates: end: 20180130
  77. FUROSEMIDE [Concomitant]
     Active Substance: FUROSEMIDE
     Indication: Product used for unknown indication
     Dosage: 80 MILLIGRAM, QD
     Route: 048
     Dates: end: 20180130
  78. FUROSEMIDE [Concomitant]
     Active Substance: FUROSEMIDE
     Dosage: 40 MG, UNK 12 PM
     Route: 048
  79. FUROSEMIDE [Concomitant]
     Active Substance: FUROSEMIDE
     Dosage: 80MG MORNING, 40MG 12PM
     Route: 048
  80. FUROSEMIDE [Concomitant]
     Active Substance: FUROSEMIDE
     Dosage: 80 MILLIGRAM, QD
     Route: 048
     Dates: end: 20180130
  81. GLICLAZIDE [Concomitant]
     Active Substance: GLICLAZIDE
     Indication: Product used for unknown indication
     Dosage: 40 MILLIGRAM, MONTHLY
     Route: 048
  82. GLICLAZIDE [Concomitant]
     Active Substance: GLICLAZIDE
     Dosage: 40 MILLIGRAM, QD
     Route: 048
  83. GLICLAZIDE [Concomitant]
     Active Substance: GLICLAZIDE
     Dosage: 40 MILLIGRAM, QD, MORNING
     Route: 048
  84. PREDNISOLONE [Concomitant]
     Active Substance: PREDNISOLONE
     Indication: Product used for unknown indication
     Dosage: 5 MILLIGRAM, AM
     Route: 048
  85. PREDNISOLONE [Concomitant]
     Active Substance: PREDNISOLONE
     Dosage: 5 MILLIGRAM, QD
     Route: 048
  86. PREDNISOLONE [Concomitant]
     Active Substance: PREDNISOLONE
     Dosage: 5 MILLIGRAM, MONTHLY
     Route: 048
     Dates: start: 20180127
  87. PREDNISOLONE [Concomitant]
     Active Substance: PREDNISOLONE
     Dosage: INCREASE PREDNISOLONE TO 10 MG FOR 5 DAYS;
     Route: 065
     Dates: start: 20180127
  88. PREDNISOLONE [Concomitant]
     Active Substance: PREDNISOLONE
     Dosage: 10 MILLIGRAM
     Route: 065
  89. SENNA [Concomitant]
     Active Substance: SENNA LEAF\SENNOSIDES\SENNOSIDES A AND B
     Indication: Product used for unknown indication
     Dosage: 5 MG, QD
     Route: 048
  90. SENNA [Concomitant]
     Active Substance: SENNA LEAF\SENNOSIDES\SENNOSIDES A AND B
     Dosage: 15 MILLIGRAM, PM
     Route: 048
  91. SENNA [Concomitant]
     Active Substance: SENNA LEAF\SENNOSIDES\SENNOSIDES A AND B
     Dosage: SENNA 15MG ON PO O/A
     Route: 048
  92. SENNA [Concomitant]
     Active Substance: SENNA LEAF\SENNOSIDES\SENNOSIDES A AND B
     Dosage: UNK
     Route: 065
  93. ALBUTEROL [Concomitant]
     Active Substance: ALBUTEROL
     Indication: Product used for unknown indication
     Dosage: UNK
     Route: 065
  94. ALBUTEROL [Concomitant]
     Active Substance: ALBUTEROL
     Dosage: UNK
     Route: 065
  95. ALBUTEROL [Concomitant]
     Active Substance: ALBUTEROL
     Dosage: UNK
     Route: 065
  96. ALBUTEROL [Concomitant]
     Active Substance: ALBUTEROL
     Dosage: UNK
     Route: 065
  97. ALBUTEROL [Concomitant]
     Active Substance: ALBUTEROL
     Dosage: UNK
     Route: 065
  98. ALBUTEROL [Concomitant]
     Active Substance: ALBUTEROL
     Dosage: UNK
     Route: 065
  99. ALBUTEROL [Concomitant]
     Active Substance: ALBUTEROL
     Dosage: UNK
     Route: 065
  100. GLUCOGEL [Concomitant]
     Indication: Product used for unknown indication
     Dosage: UNK
     Route: 065
  101. GLUCOGEL [Concomitant]
     Dosage: UNK
     Route: 065
     Dates: start: 20180130
  102. GLUCOGEL [Concomitant]
     Dosage: UNK
     Route: 065
  103. GLUCOGEL [Concomitant]
     Dosage: UNK
     Route: 065
  104. GLUCOGEL [Concomitant]
     Dosage: UNK
     Route: 065
  105. GLUCOGEL [Concomitant]
     Dosage: UNK
     Route: 065
  106. GLUCOGEL [Concomitant]
     Dosage: UNK
     Route: 065
  107. GLUCOGEL [Concomitant]
     Dosage: UNK
     Route: 065
  108. GLUCAGON [Concomitant]
     Active Substance: GLUCAGON
     Indication: Product used for unknown indication
     Dosage: UNK
     Route: 030
  109. GLUCAGON [Concomitant]
     Active Substance: GLUCAGON
     Dosage: UNK
     Route: 030
     Dates: start: 20180130
  110. DEXTROSE [Concomitant]
     Active Substance: DEXTROSE
     Indication: Product used for unknown indication
     Dosage: UNK
     Route: 042
     Dates: end: 20180130
  111. DEXTROSE [Concomitant]
     Active Substance: DEXTROSE
     Dosage: UNK
     Route: 065
     Dates: start: 20180130
  112. CHOLECALCIFEROL [Concomitant]
     Active Substance: CHOLECALCIFEROL
     Indication: Product used for unknown indication
     Dosage: 20 NANOGRAM, MONTHLY
     Route: 048
  113. CHOLECALCIFEROL [Concomitant]
     Active Substance: CHOLECALCIFEROL
     Dosage: 20 NANOGRAM, QD, MORNING
     Route: 048

REACTIONS (34)
  - Myocardial ischaemia [Fatal]
  - Cardiac failure congestive [Fatal]
  - Acute kidney injury [Fatal]
  - Immunosuppressant drug level increased [Fatal]
  - Sepsis [Fatal]
  - Pneumonia [Fatal]
  - Oesophageal carcinoma [Fatal]
  - Drug interaction [Fatal]
  - Labelled drug-drug interaction medication error [Not Recovered/Not Resolved]
  - Oesophageal perforation [Not Recovered/Not Resolved]
  - Soft tissue mass [Unknown]
  - Toxicity to various agents [Not Recovered/Not Resolved]
  - Drug level increased [Not Recovered/Not Resolved]
  - Transplant failure [Not Recovered/Not Resolved]
  - Dysphagia [Unknown]
  - Inflammatory marker increased [Unknown]
  - Rales [Unknown]
  - Productive cough [Unknown]
  - Hypoglycaemia [Unknown]
  - Haemoptysis [Unknown]
  - Superinfection [Unknown]
  - Cardiomegaly [Unknown]
  - Lung consolidation [Unknown]
  - Lower respiratory tract infection [Unknown]
  - Pleural effusion [Unknown]
  - Ascites [Unknown]
  - Rash [Unknown]
  - Pyrexia [Unknown]
  - Multimorbidity [Unknown]
  - Swelling [Unknown]
  - Cough [Unknown]
  - Dyspnoea [Unknown]
  - Malaise [Unknown]
  - Renal impairment [Unknown]

NARRATIVE: CASE EVENT DATE: 20180118
